FAERS Safety Report 20620076 (Version 1)
Quarter: 2022Q1

REPORT INFORMATION
  Report Type: Spontaneous
  Country: IL (occurrence: IL)
  Receive Date: 20220322
  Receipt Date: 20220322
  Transmission Date: 20220423
  Serious: Yes (Life-Threatening, Other)
  Sender: FDA-Public Use
  Company Number: IL-GILEAD-2022-0573975

PATIENT
  Age: 6 Year
  Sex: Female

DRUGS (1)
  1. AMPHOTERICIN B [Suspect]
     Active Substance: AMPHOTERICIN B
     Indication: Product used for unknown indication
     Dosage: UNK, UNKNOWN FREQ.
     Route: 065
     Dates: start: 20220306

REACTIONS (5)
  - Erythema [Unknown]
  - Blood pressure increased [Unknown]
  - Oxygen saturation decreased [Unknown]
  - Dyspnoea [Unknown]
  - Nausea [Unknown]
